FAERS Safety Report 6037763-8 (Version None)
Quarter: 2009Q1

REPORT INFORMATION
  Report Type: 
  Country: None (occurrence: None)
  Receive Date: 20090113
  Receipt Date: 20081229
  Transmission Date: 20090719
  Serious: Yes (Hospitalization)
  Sender: FDA-Public Use
  Company Number: KV200801482

PATIENT
  Age: 43 Year
  Sex: Female
  Weight: 66.2 kg

DRUGS (4)
  1. HYDROMORPHONE HYDROCHLORIDE [Suspect]
     Indication: ABDOMINAL PAIN UPPER
     Dosage: 2 MG Q 4HRS ORAL
     Route: 048
     Dates: start: 20081101, end: 20081201
  2. PROZAC [Concomitant]
  3. OMEPREZOLE [Concomitant]
  4. SOMA    (CARISPPRODOL) [Concomitant]

REACTIONS (3)
  - OVERDOSE [None]
  - PRODUCT QUALITY ISSUE [None]
  - UNRESPONSIVE TO STIMULI [None]
